FAERS Safety Report 8373898-2 (Version None)
Quarter: 2012Q2

REPORT INFORMATION
  Report Type: 
  Country: None (occurrence: None)
  Receive Date: 20120521
  Receipt Date: 20120515
  Transmission Date: 20120825
  Serious: Yes (Other)
  Sender: FDA-Public Use
  Company Number: US-ROCHE-1070013

PATIENT
  Age: 60 Year
  Sex: Male

DRUGS (5)
  1. FLUOROURACIL [Concomitant]
  2. OXALIPLATIN [Concomitant]
  3. AVASTIN [Suspect]
     Indication: COLORECTAL CANCER
  4. LEUCOVORIN CALCIUM [Concomitant]
  5. IRINOTECAN HCL [Concomitant]

REACTIONS (1)
  - CARDIOMYOPATHY [None]
